FAERS Safety Report 7476694-3 (Version None)
Quarter: 2011Q2

REPORT INFORMATION
  Report Type: 
  Country: None (occurrence: None)
  Receive Date: 20110510
  Receipt Date: 20110510
  Transmission Date: 20111010
  Serious: No
  Sender: FDA-Public Use
  Company Number: None

PATIENT
  Age: 57 Year
  Sex: Female
  Weight: 49.1 kg

DRUGS (1)
  1. MONISTAT [Suspect]
     Dosage: 3 ONLY
     Dates: start: 20110503

REACTIONS (1)
  - PAIN [None]
